FAERS Safety Report 5533411-1 (Version None)
Quarter: 2007Q4

REPORT INFORMATION
  Report Type: 
  Country: None (occurrence: None)
  Receive Date: 20071204
  Receipt Date: 20071126
  Transmission Date: 20080405
  Serious: Yes (Death, Other)
  Sender: FDA-Public Use
  Company Number: JP-PFIZER INC-2007097131

PATIENT
  Sex: Female
  Weight: 51 kg

DRUGS (9)
  1. ZOLOFT [Suspect]
     Indication: DEPRESSION
     Route: 048
     Dates: start: 20070915, end: 20071110
  2. ALCOHOL [Suspect]
     Route: 048
  3. AMLODIN [Concomitant]
     Route: 048
  4. EVISTA [Concomitant]
     Route: 048
  5. GASTER [Concomitant]
     Route: 048
  6. MYSLEE [Concomitant]
     Route: 048
  7. INFREE S [Concomitant]
     Route: 048
  8. KETOPROFEN [Concomitant]
     Route: 062
  9. MUSCALM [Concomitant]
     Route: 048

REACTIONS (2)
  - ALCOHOL ABUSE [None]
  - DEATH [None]
